FAERS Safety Report 8279399-4 (Version None)
Quarter: 2012Q2

REPORT INFORMATION
  Report Type: 
  Country: None (occurrence: None)
  Receive Date: 20120412
  Receipt Date: 20120203
  Transmission Date: 20120825
  Serious: No
  Sender: FDA-Public Use
  Company Number: US-ASTRAZENECA-2010SE41115

PATIENT
  Age: 32 Year
  Sex: Female

DRUGS (1)
  1. NEXIUM [Suspect]
     Indication: GASTROOESOPHAGEAL REFLUX DISEASE
     Route: 048
     Dates: start: 20060101, end: 20100801

REACTIONS (12)
  - ABDOMINAL PAIN UPPER [None]
  - THROAT IRRITATION [None]
  - APHAGIA [None]
  - WEIGHT DECREASED [None]
  - DYSPHONIA [None]
  - DRUG DOSE OMISSION [None]
  - GASTROOESOPHAGEAL REFLUX DISEASE [None]
  - PHARYNGEAL OEDEMA [None]
  - DYSPHAGIA [None]
  - COUGH [None]
  - HYPERVENTILATION [None]
  - MATERNAL EXPOSURE DURING PREGNANCY [None]
